FAERS Safety Report 23145009 (Version 1)
Quarter: 2023Q4

REPORT INFORMATION
  Report Type: Spontaneous
  Country: GB (occurrence: GB)
  Receive Date: 20231103
  Receipt Date: 20231103
  Transmission Date: 20240109
  Serious: Yes (Life-Threatening, Other)
  Sender: FDA-Public Use
  Company Number: None

PATIENT
  Age: 24 Year
  Sex: Female

DRUGS (2)
  1. TOPIRAMATE [Suspect]
     Active Substance: TOPIRAMATE
     Indication: Migraine
     Dosage: 100 MILLIGRAM, QD(WITHDRAW FROM TOPIRAMATE, OTHER MEDICATIONS ARE INEFFECTIVE)
     Route: 065
     Dates: start: 20130415
  2. ACETAMINOPHEN [Concomitant]
     Active Substance: ACETAMINOPHEN
     Dosage: 100 MILLIGRAM, QD
     Route: 065

REACTIONS (5)
  - Sepsis [Unknown]
  - Amniotic cavity infection [Unknown]
  - Loss of consciousness [Unknown]
  - Haemorrhage [Unknown]
  - Maternal exposure during pregnancy [Recovered/Resolved]
